FAERS Safety Report 6739613-0 (Version None)
Quarter: 2010Q2

REPORT INFORMATION
  Report Type: 
  Country: None (occurrence: None)
  Receive Date: 20100525
  Receipt Date: 20100204
  Transmission Date: 20101027
  Serious: No
  Sender: FDA-Public Use
  Company Number: US-AMGEN-KDL390602

PATIENT
  Sex: Male

DRUGS (4)
  1. NPLATE [Suspect]
     Indication: IDIOPATHIC THROMBOCYTOPENIC PURPURA
     Dates: start: 20100121
  2. SYNTHROID [Concomitant]
  3. ACIPHEX [Concomitant]
  4. ROXANOL [Concomitant]

REACTIONS (3)
  - RASH [None]
  - RASH MACULAR [None]
  - URTICARIA [None]
